FAERS Safety Report 5773507-2 (Version None)
Quarter: 2008Q2

REPORT INFORMATION
  Report Type: 
  Country: None (occurrence: None)
  Receive Date: 20080616
  Receipt Date: 20080605
  Transmission Date: 20081010
  Serious: Yes (Death, Hospitalization)
  Sender: FDA-Public Use
  Company Number: US-ROCHE-567759

PATIENT
  Sex: Male
  Weight: 71.7 kg

DRUGS (2)
  1. MYCOPHENOLATE MOFETIL [Suspect]
     Route: 048
     Dates: start: 20071127, end: 20080509
  2. VALGANCICLOVIR HCL [Suspect]
     Route: 048
     Dates: start: 20071204, end: 20080509

REACTIONS (2)
  - ANOREXIA [None]
  - FUNGAL ABSCESS CENTRAL NERVOUS SYSTEM [None]
